FAERS Safety Report 4694818-8 (Version None)
Quarter: 2005Q2

REPORT INFORMATION
  Report Type: 
  Country: None (occurrence: None)
  Receive Date: 20050620
  Receipt Date: 20050415
  Transmission Date: 20051028
  Serious: Yes (Hospitalization, Other)
  Sender: FDA-Public Use
  Company Number: 2005UW05914

PATIENT
  Age: 946 Month
  Sex: Male
  Weight: 75.9 kg

DRUGS (17)
  1. CRESTOR [Suspect]
     Route: 048
     Dates: start: 20040123, end: 20041101
  2. ASPIRIN [Concomitant]
  3. ASPIRIN [Concomitant]
  4. FLOMAX [Concomitant]
  5. PHOSLO [Concomitant]
  6. ALBUTEROL [Concomitant]
  7. POSSIBLY OTHER NSAIDS [Concomitant]
  8. PRINIVIL [Concomitant]
  9. LOPRESSOR [Concomitant]
  10. HUMULIN INSULIN [Concomitant]
  11. HUMALOG [Concomitant]
  12. IMDUR [Concomitant]
  13. ALDACTONE [Concomitant]
  14. LASIX [Concomitant]
  15. TOPROL-XL [Concomitant]
     Route: 048
  16. ACTOS [Concomitant]
  17. K-DUR 10 [Concomitant]

REACTIONS (12)
  - BLOOD GLUCOSE INCREASED [None]
  - DEHYDRATION [None]
  - DIALYSIS [None]
  - HAEMATOCRIT DECREASED [None]
  - HAEMOGLOBIN DECREASED [None]
  - HYPERKALAEMIA [None]
  - LOSS OF CONSCIOUSNESS [None]
  - MONOCYTE PERCENTAGE INCREASED [None]
  - RENAL FAILURE ACUTE [None]
  - RENAL FAILURE CHRONIC [None]
  - RENAL TUBULAR NECROSIS [None]
  - RHABDOMYOLYSIS [None]
